FAERS Safety Report 5589731-8 (Version None)
Quarter: 2008Q1

REPORT INFORMATION
  Report Type: 
  Country: None (occurrence: None)
  Receive Date: 20080114
  Receipt Date: 20080108
  Transmission Date: 20080703
  Serious: Yes (Hospitalization)
  Sender: FDA-Public Use
  Company Number: B0502594A

PATIENT
  Age: 50 Year
  Sex: Female

DRUGS (1)
  1. ZELITREX [Suspect]
     Dosage: 500MG PER DAY
     Route: 048
     Dates: start: 20071105, end: 20071105

REACTIONS (3)
  - ANGIOEDEMA [None]
  - HYPOTENSION [None]
  - URTICARIA [None]
